FAERS Safety Report 4984547-5 (Version None)
Quarter: 2006Q2

REPORT INFORMATION
  Report Type: 
  Country: None (occurrence: None)
  Receive Date: 20060427
  Receipt Date: 20020718
  Transmission Date: 20061013
  Serious: No
  Sender: FDA-Public Use
  Company Number: US-GLAXOSMITHKLINE-A0374543A

PATIENT
  Age: 54 Year
  Sex: Female

DRUGS (3)
  1. DEXEDRINE [Suspect]
     Indication: ATTENTION DEFICIT/HYPERACTIVITY DISORDER
     Dosage: 15MG PER DAY
     Route: 048
     Dates: start: 19730101
  2. ASPIRIN [Concomitant]
     Route: 065
  3. ESTROGENS SOL/INJ [Concomitant]
     Route: 065

REACTIONS (3)
  - ACNE [None]
  - ASTHENIA [None]
  - DRUG INEFFECTIVE [None]
